FAERS Safety Report 10160339 (Version 1)
Quarter: 2014Q2

REPORT INFORMATION
  Report Type: Spontaneous
  Country: CA (occurrence: CA)
  Receive Date: 20140508
  Receipt Date: 20140508
  Transmission Date: 20141212
  Serious: Yes (Other)
  Sender: FDA-Public Use
  Company Number: CA-GLAXOSMITHKLINE-A1072366A

PATIENT
  Sex: Female

DRUGS (5)
  1. MIRAPEX [Suspect]
     Indication: PARKINSONISM
  2. REQUIP [Suspect]
     Indication: PARKINSON^S DISEASE
  3. NEUPRO [Suspect]
     Indication: PARKINSON^S DISEASE
  4. LYRICA [Concomitant]
  5. ARTHROTEC [Concomitant]

REACTIONS (14)
  - Dyslexia [Unknown]
  - Deep brain stimulation [Unknown]
  - Parkinsonism [Unknown]
  - Somnolence [Unknown]
  - Feeling abnormal [Unknown]
  - Tremor [Unknown]
  - Muscular weakness [Unknown]
  - Gait disturbance [Unknown]
  - Compulsive shopping [Unknown]
  - Middle insomnia [Unknown]
  - Restless legs syndrome [Unknown]
  - Restless legs syndrome [Unknown]
  - Myalgia [Unknown]
  - Overdose [Unknown]
